FAERS Safety Report 9914674 (Version 2)
Quarter: 2014Q1

REPORT INFORMATION
  Report Type: Spontaneous
  Country: US (occurrence: US)
  Receive Date: 20140220
  Receipt Date: 20140225
  Transmission Date: 20141002
  Serious: Yes (Other)
  Sender: FDA-Public Use
  Company Number: US-PFIZER INC-2014044336

PATIENT
  Age: 32 Year
  Sex: Male

DRUGS (5)
  1. VANCOMYCIN HCL [Suspect]
     Indication: MENINGITIS STAPHYLOCOCCAL
     Dosage: UNK
     Route: 042
  2. PIOGLITAZONE [Concomitant]
     Dosage: UNK
  3. ROSUVASTATIN [Concomitant]
     Dosage: UNK
  4. MONTELUKAST [Concomitant]
     Dosage: UNK
  5. BUDESONIDE/FORMOTEROL FUMARATE [Concomitant]
     Dosage: UNK
     Route: 055

REACTIONS (1)
  - Meningitis eosinophilic [Recovered/Resolved]
